FAERS Safety Report 21675124 (Version 1)
Quarter: 2022Q4

REPORT INFORMATION
  Report Type: Spontaneous
  Country: US (occurrence: US)
  Receive Date: 20221202
  Receipt Date: 20221202
  Transmission Date: 20230113
  Serious: Yes (Other)
  Sender: FDA-Public Use
  Company Number: US-002147023-NVSC2022US278107

PATIENT
  Age: 16 Year
  Sex: Male
  Weight: 72 kg

DRUGS (1)
  1. DABRAFENIB [Suspect]
     Active Substance: DABRAFENIB
     Indication: Ameloblastoma
     Dosage: 50 MG, BID
     Route: 048
     Dates: start: 20211101, end: 20221101

REACTIONS (3)
  - Erythema nodosum [Recovering/Resolving]
  - Product use in unapproved indication [Recovered/Resolved]
  - Incorrect dose administered [Recovered/Resolved]

NARRATIVE: CASE EVENT DATE: 20211101
